FAERS Safety Report 4740452-0 (Version None)
Quarter: 2005Q3

REPORT INFORMATION
  Report Type: 
  Country: None (occurrence: None)
  Receive Date: 20050810
  Receipt Date: 20050729
  Transmission Date: 20060218
  Serious: Yes (Hospitalization)
  Sender: FDA-Public Use
  Company Number: 2005AP04123

PATIENT
  Age: 22284 Day
  Sex: Female
  Weight: 60 kg

DRUGS (15)
  1. OMEPRAZOLE [Suspect]
  2. ZOLEDRONIC ACID [Suspect]
     Indication: BONE DISORDER
     Route: 042
     Dates: start: 20050601, end: 20050601
  3. MYCOPHENOLATE MOFETIL [Suspect]
  4. CYCLOSPORINE [Suspect]
  5. METHYLDOPA [Suspect]
     Indication: ESSENTIAL HYPERTENSION
     Route: 048
     Dates: end: 20050612
  6. PREDNISOLONE [Concomitant]
     Dates: start: 20000215
  7. IRBESARTAN [Concomitant]
     Indication: ESSENTIAL HYPERTENSION
  8. PRAVASTATIN [Concomitant]
  9. CLARITHROMYCIN [Concomitant]
  10. MAGMIN [Concomitant]
  11. BACTRIM DS [Concomitant]
     Indication: PROPHYLAXIS
  12. CALTRATE + VITAMIN D [Concomitant]
     Indication: BONE DISORDER
  13. PREMARIN [Concomitant]
     Indication: MENOPAUSAL SYMPTOMS
  14. ITRACONAZOLE [Concomitant]
     Indication: ASPERGILLOSIS
  15. INDAPAMIDE [Concomitant]
     Indication: ESSENTIAL HYPERTENSION

REACTIONS (3)
  - FLANK PAIN [None]
  - RENAL FAILURE ACUTE [None]
  - URINE ABNORMALITY [None]
